FAERS Safety Report 6130443-X (Version None)
Quarter: 2009Q1

REPORT INFORMATION
  Report Type: 
  Country: None (occurrence: None)
  Receive Date: 20090324
  Receipt Date: 20090316
  Transmission Date: 20090719
  Serious: Yes (Hospitalization)
  Sender: FDA-Public Use
  Company Number: FR-ABBOTT-09P-056-0562746-00

PATIENT
  Sex: Male

DRUGS (18)
  1. ZECLAR [Suspect]
     Indication: ASPERGILLOSIS
     Route: 048
     Dates: start: 20080703
  2. ITRACONAZOLE [Suspect]
     Indication: ASPERGILLOSIS
     Route: 048
     Dates: start: 20080317, end: 20080615
  3. ITRACONAZOLE [Suspect]
     Dates: start: 20080721, end: 20090117
  4. OFLOXACINE [Suspect]
     Indication: ASPERGILLOSIS
     Route: 048
     Dates: start: 20081030
  5. BUDESONIDE W/FORMOTEROL FUMARATE [Suspect]
     Indication: CHRONIC OBSTRUCTIVE PULMONARY DISEASE
     Route: 055
  6. FLUTICASONE W/SALMETEROL [Suspect]
     Indication: CHRONIC OBSTRUCTIVE PULMONARY DISEASE
     Route: 055
  7. VENLAFAXINE HCL [Suspect]
     Indication: DRUG USE FOR UNKNOWN INDICATION
  8. TIOTROPIUM BROMIDE [Concomitant]
     Indication: DRUG USE FOR UNKNOWN INDICATION
  9. TERBUTALINE SULFATE [Concomitant]
     Indication: DRUG USE FOR UNKNOWN INDICATION
  10. FENOTEROL W/IPRATROPIUM BROMIDE [Concomitant]
     Indication: DRUG USE FOR UNKNOWN INDICATION
  11. THEOPHYLLINE [Concomitant]
     Indication: DRUG USE FOR UNKNOWN INDICATION
  12. ALPRAZOLAM [Concomitant]
     Indication: DRUG USE FOR UNKNOWN INDICATION
  13. AMITRIPTYLINE [Concomitant]
     Indication: DRUG USE FOR UNKNOWN INDICATION
  14. HYDROXYZINE [Concomitant]
     Indication: DRUG USE FOR UNKNOWN INDICATION
  15. ZOPICLONE [Concomitant]
     Indication: DRUG USE FOR UNKNOWN INDICATION
  16. REPAGLINID [Concomitant]
     Indication: DRUG USE FOR UNKNOWN INDICATION
  17. TANAKAN [Concomitant]
     Indication: DRUG USE FOR UNKNOWN INDICATION
  18. RESIDRONATE MONOSODIUM [Concomitant]
     Indication: DRUG USE FOR UNKNOWN INDICATION

REACTIONS (6)
  - ADRENAL INSUFFICIENCY [None]
  - ASCITES [None]
  - DYSPNOEA [None]
  - OEDEMA PERIPHERAL [None]
  - RHABDOMYOLYSIS [None]
  - WEIGHT INCREASED [None]
